FAERS Safety Report 13610014 (Version 2)
Quarter: 2017Q3

REPORT INFORMATION
  Report Type: Report from Study
  Country: US (occurrence: US)
  Receive Date: 20170603
  Receipt Date: 20170721
  Transmission Date: 20171127
  Serious: Yes (Other)
  Sender: FDA-Public Use
  Company Number: PHEH2017US016601

PATIENT
  Sex: Female

DRUGS (1)
  1. AFINITOR [Suspect]
     Active Substance: EVEROLIMUS
     Indication: PRODUCT USED FOR UNKNOWN INDICATION
     Dosage: 10 MG/KG, QD
     Route: 048

REACTIONS (5)
  - Increased appetite [Unknown]
  - Stevens-Johnson syndrome [Unknown]
  - Rash [Unknown]
  - Stomatitis [Unknown]
  - Skin exfoliation [Unknown]
